FAERS Safety Report 5006953-5 (Version None)
Quarter: 2006Q2

REPORT INFORMATION
  Report Type: 
  Country: None (occurrence: None)
  Receive Date: 20060517
  Receipt Date: 20060421
  Transmission Date: 20061013
  Serious: Yes (Death, Hospitalization)
  Sender: FDA-Public Use
  Company Number: 2006MP000542

PATIENT
  Age: 61 Year
  Sex: Female

DRUGS (1)
  1. GLIADEL [Suspect]
     Indication: GLIOBLASTOMA
     Dosage: 61.6 MG; X1; ICER
     Route: 018
     Dates: start: 20060407, end: 20060407

REACTIONS (38)
  - ABDOMINAL DISTENSION [None]
  - ABDOMINAL TENDERNESS [None]
  - AGITATION [None]
  - BLOOD ALBUMIN DECREASED [None]
  - BLOOD BICARBONATE DECREASED [None]
  - BLOOD BILIRUBIN INCREASED [None]
  - BLOOD CREATINE PHOSPHOKINASE INCREASED [None]
  - BLOOD FIBRINOGEN INCREASED [None]
  - BLOOD GLUCOSE INCREASED [None]
  - BLOOD SODIUM INCREASED [None]
  - CARDIAC MURMUR [None]
  - CARDIOVASCULAR INSUFFICIENCY [None]
  - COMA [None]
  - DISSEMINATED INTRAVASCULAR COAGULATION [None]
  - DRUG TOXICITY [None]
  - EPILEPSY [None]
  - GASTROINTESTINAL HYPOMOTILITY [None]
  - GAZE PALSY [None]
  - GENERAL PHYSICAL HEALTH DETERIORATION [None]
  - GRAVITATIONAL OEDEMA [None]
  - HAEMOGLOBIN DECREASED [None]
  - HAEMOPTYSIS [None]
  - HYPOTENSION [None]
  - MITRAL VALVE INCOMPETENCE [None]
  - MYOGLOBIN BLOOD INCREASED [None]
  - PCO2 DECREASED [None]
  - PERICARDIAL EFFUSION [None]
  - PO2 DECREASED [None]
  - PROTEIN TOTAL DECREASED [None]
  - PURULENT DISCHARGE [None]
  - RED BLOOD CELL COUNT DECREASED [None]
  - RESPIRATION ABNORMAL [None]
  - RESPIRATORY FAILURE [None]
  - SOPOR [None]
  - TACHYCARDIA [None]
  - THROMBOCYTOPENIA [None]
  - TRICUSPID VALVE INCOMPETENCE [None]
  - VAGINAL HAEMORRHAGE [None]
